FAERS Safety Report 12797811 (Version 1)
Quarter: 2016Q3

REPORT INFORMATION
  Report Type: Spontaneous
  Country: US (occurrence: US)
  Receive Date: 20160929
  Receipt Date: 20160929
  Transmission Date: 20161109
  Serious: Yes (Death, Hospitalization)
  Sender: FDA-Public Use
  Company Number: None

PATIENT
  Age: 69 Year
  Sex: Male

DRUGS (1)
  1. PRADAXA [Suspect]
     Active Substance: DABIGATRAN ETEXILATE MESYLATE
     Indication: ATRIAL FIBRILLATION
     Dates: start: 20130104, end: 20130119

REACTIONS (4)
  - Dyspepsia [None]
  - Sepsis [None]
  - Endocarditis [None]
  - Loss of consciousness [None]

NARRATIVE: CASE EVENT DATE: 20130119
